FAERS Safety Report 20767032 (Version 4)
Quarter: 2022Q3

REPORT INFORMATION
  Report Type: Spontaneous
  Country: US (occurrence: US)
  Receive Date: 20220429
  Receipt Date: 20220923
  Transmission Date: 20221027
  Serious: Yes (Other)
  Sender: FDA-Public Use
  Company Number: US-GLAXOSMITHKLINE-US2022AMR068569

PATIENT

DRUGS (12)
  1. ZEJULA [Suspect]
     Active Substance: NIRAPARIB
     Indication: Genital neoplasm malignant female
     Dosage: 100 MG, QD
     Dates: start: 202204
  2. ZEJULA [Suspect]
     Active Substance: NIRAPARIB
     Indication: Fallopian tube cancer
     Dosage: 100 MG, QD
  3. FLUTICASONE PROPIONATE [Concomitant]
     Active Substance: FLUTICASONE PROPIONATE
     Indication: Product used for unknown indication
     Dosage: UNK
  4. ASPIRIN [Concomitant]
     Active Substance: ASPIRIN
     Indication: Product used for unknown indication
     Dosage: UNK
  5. OMEPRAZOLE [Concomitant]
     Active Substance: OMEPRAZOLE
     Indication: Product used for unknown indication
     Dosage: UNK
  6. SINGULAIR [Concomitant]
     Active Substance: MONTELUKAST SODIUM
     Indication: Product used for unknown indication
     Dosage: UNK
  7. ASMANEX [Concomitant]
     Active Substance: MOMETASONE FUROATE
     Indication: Product used for unknown indication
     Dosage: UNK
  8. QUERCETIN DIHYDRATE [Concomitant]
     Active Substance: QUERCETIN DIHYDRATE
     Indication: Product used for unknown indication
     Dosage: UNK (POWDER)
  9. CALCIUM\CHOLECALCIFEROL [Concomitant]
     Active Substance: CALCIUM\CHOLECALCIFEROL
     Indication: Product used for unknown indication
     Dosage: UNK
  10. HERBALS\TURMERIC [Concomitant]
     Active Substance: HERBALS\TURMERIC
     Indication: Product used for unknown indication
     Dosage: UNK
  11. ALBUTEROL SULFATE [Concomitant]
     Active Substance: ALBUTEROL SULFATE
     Indication: Product used for unknown indication
     Dosage: UNK
  12. METOPROLOL SUCCINATE [Concomitant]
     Active Substance: METOPROLOL SUCCINATE
     Indication: Product used for unknown indication
     Dosage: UNK

REACTIONS (21)
  - Loss of consciousness [Unknown]
  - Abdominal pain [Not Recovered/Not Resolved]
  - Nausea [Not Recovered/Not Resolved]
  - Constipation [Not Recovered/Not Resolved]
  - Diarrhoea [Not Recovered/Not Resolved]
  - Insomnia [Not Recovered/Not Resolved]
  - Fatigue [Not Recovered/Not Resolved]
  - Dry mouth [Unknown]
  - Blood pressure increased [Recovered/Resolved]
  - Chest discomfort [Recovered/Resolved]
  - Blood pressure fluctuation [Recovering/Resolving]
  - Vision blurred [Recovered/Resolved]
  - Dizziness [Recovered/Resolved]
  - COVID-19 [Unknown]
  - Headache [Not Recovered/Not Resolved]
  - Colitis [Unknown]
  - Irritable bowel syndrome [Recovering/Resolving]
  - Gastrointestinal motility disorder [Recovering/Resolving]
  - Palpitations [Recovering/Resolving]
  - Product dose omission issue [Unknown]
  - Off label use [Unknown]

NARRATIVE: CASE EVENT DATE: 20220912
